FAERS Safety Report 5031337-3 (Version None)
Quarter: 2006Q2

REPORT INFORMATION
  Report Type: 
  Country: None (occurrence: None)
  Receive Date: 20060616
  Receipt Date: 20060531
  Transmission Date: 20061013
  Serious: Yes (Death, Other)
  Sender: FDA-Public Use
  Company Number: CHF-20050195

PATIENT
  Age: 1 Day
  Sex: Male

DRUGS (1)
  1. -NATURAL PULMONARY SURFACTANT STERILE SUSPENSION CUROSURF 120 MG/1,5ML [Suspect]
     Indication: RESPIRATORY DISTRESS
     Route: 039

REACTIONS (31)
  - CARDIAC ARREST NEONATAL [None]
  - CONDITION AGGRAVATED [None]
  - CREPITATIONS [None]
  - DISSEMINATED INTRAVASCULAR COAGULATION [None]
  - EMPHYSEMA [None]
  - GENERAL PHYSICAL HEALTH DETERIORATION [None]
  - HAEMORRHAGIC DISEASE OF NEWBORN [None]
  - HYPERCAPNIA [None]
  - HYPERGLYCAEMIA [None]
  - HYPOTONIA NEONATAL [None]
  - INTERSTITIAL LUNG DISEASE [None]
  - JAUNDICE NEONATAL [None]
  - LEUKOPENIA NEONATAL [None]
  - MULTI-ORGAN FAILURE [None]
  - NEONATAL HYPOTENSION [None]
  - NEONATAL HYPOXIA [None]
  - NEONATAL INFECTION [None]
  - NEONATAL RESPIRATORY DISTRESS SYNDROME [None]
  - NEONATAL TACHYPNOEA [None]
  - OFF LABEL USE [None]
  - OLIGURIA [None]
  - PATENT DUCTUS ARTERIOSUS [None]
  - PNEUMOCOCCAL INFECTION [None]
  - PNEUMOPERICARDIUM [None]
  - PNEUMOPERITONEUM [None]
  - PROTEIN C INCREASED [None]
  - PULMONARY HYPERTENSION [None]
  - RALES [None]
  - RESPIRATORY DISORDER NEONATAL [None]
  - SHOCK [None]
  - TRICUSPID VALVE INCOMPETENCE [None]
